FAERS Safety Report 6768334-3 (Version None)
Quarter: 2010Q2

REPORT INFORMATION
  Report Type: 
  Country: None (occurrence: None)
  Receive Date: 20100610
  Receipt Date: 20100526
  Transmission Date: 20101027
  Serious: Yes (Other)
  Sender: FDA-Public Use
  Company Number: 001712

PATIENT
  Sex: Male
  Weight: 101.6 kg

DRUGS (4)
  1. LACOSAMIDE [Suspect]
     Indication: CONVULSION
     Dosage: 150 MG BID ORAL
     Dates: start: 20090807, end: 20090819
  2. KEPPRA [Suspect]
     Indication: CONVULSION
     Dosage: 2000 MG BID, STARTED 2-3 YEARS AGO, ORAL
     Route: 048
  3. TRILEPTAL [Concomitant]
  4. INDERAL [Concomitant]

REACTIONS (6)
  - ATAXIA [None]
  - CONVULSION [None]
  - DEPRESSION [None]
  - HEAD INJURY [None]
  - SUBDURAL HYGROMA [None]
  - URTICARIA [None]
